FAERS Safety Report 4692326-1 (Version None)
Quarter: 2005Q2

REPORT INFORMATION
  Report Type: 
  Country: None (occurrence: None)
  Receive Date: 20050614
  Receipt Date: 20050610
  Transmission Date: 20051028
  Serious: Yes (Hospitalization)
  Sender: FDA-Public Use
  Company Number: TCI2004A04471

PATIENT
  Age: 49 Year
  Sex: Female

DRUGS (6)
  1. LEUPROLIDE ACETATE [Suspect]
     Indication: UTERINE LEIOMYOMA
     Dosage: 3.75 MG (3.75 MG, 1 IN 28 D) SUBCUTANEOUS
     Route: 058
     Dates: start: 20041120, end: 20050316
  2. NORGESTREL AND ETHINYL ESTRADIOL [Suspect]
     Indication: MENORRHAGIA
     Dosage: SEE IMAGE
     Route: 048
     Dates: start: 20041120, end: 20041126
  3. NORGESTREL AND ETHINYL ESTRADIOL [Suspect]
     Indication: MENORRHAGIA
     Dosage: SEE IMAGE
     Route: 048
     Dates: start: 20041201, end: 20041202
  4. NORGESTREL AND ETHINYL ESTRADIOL [Suspect]
     Indication: MENORRHAGIA
     Dosage: SEE IMAGE
     Route: 048
     Dates: start: 20041203
  5. FERROMIA (FERROUS CITRATE) (TABLETS) [Concomitant]
  6. CINAL (CINAL) (TABLETS) [Concomitant]

REACTIONS (11)
  - ARTERIAL THROMBOSIS LIMB [None]
  - DIFFICULTY IN WALKING [None]
  - GENITAL HAEMORRHAGE [None]
  - HYPOAESTHESIA [None]
  - INSOMNIA [None]
  - MENORRHAGIA [None]
  - OEDEMA PERIPHERAL [None]
  - PAIN IN EXTREMITY [None]
  - PERIPHERAL COLDNESS [None]
  - PULSE ABSENT [None]
  - THROMBOSIS [None]
